FAERS Safety Report 7653780-6 (Version None)
Quarter: 2011Q3

REPORT INFORMATION
  Report Type: 
  Country: None (occurrence: None)
  Receive Date: 20110801
  Receipt Date: 20110801
  Transmission Date: 20111222
  Serious: No
  Sender: FDA-Public Use
  Company Number: None

PATIENT
  Sex: Female

DRUGS (1)
  1. HUMIRA [Suspect]
     Indication: RHEUMATOID ARTHRITIS
     Dosage: 40MG EVERY OTHER WEEK SUBCUTANEOUSLY
     Route: 058
     Dates: start: 20110123

REACTIONS (7)
  - FATIGUE [None]
  - PARAESTHESIA [None]
  - SINUSITIS [None]
  - HYPOAESTHESIA [None]
  - SWELLING [None]
  - ARTHRALGIA [None]
  - PRURITUS GENERALISED [None]
